FAERS Safety Report 24727146 (Version 1)
Quarter: 2024Q4

REPORT INFORMATION
  Report Type: Spontaneous
  Country: DE (occurrence: DE)
  Receive Date: 20241212
  Receipt Date: 20241212
  Transmission Date: 20250114
  Serious: Yes (Other)
  Sender: AEGERION
  Company Number: DE-AMRYT PHARMACEUTICALS DAC-AEGR007630

PATIENT

DRUGS (1)
  1. FILSUVEZ [Suspect]
     Active Substance: BIRCH TRITERPENES
     Indication: Product used for unknown indication

REACTIONS (1)
  - Superinfection bacterial [Unknown]
